FAERS Safety Report 12711178 (Version 1)
Quarter: 2016Q3

REPORT INFORMATION
  Report Type: Spontaneous
  Country: US (occurrence: US)
  Receive Date: 20160902
  Receipt Date: 20160902
  Transmission Date: 20161109
  Serious: No
  Sender: FDA-Public Use
  Company Number: PHEH2016US021773

PATIENT
  Sex: Female

DRUGS (4)
  1. LENVATINIB [Suspect]
     Active Substance: LENVATINIB
     Dosage: 14 MG, UNK
     Route: 048
  2. EVEROLIMUS [Suspect]
     Active Substance: EVEROLIMUS
     Indication: RENAL CELL CARCINOMA
     Dosage: 5 MG, UNK
     Route: 048
  3. LENVATINIB [Suspect]
     Active Substance: LENVATINIB
     Indication: RENAL CELL CARCINOMA
     Dosage: 18 MG, UNK
     Route: 048
  4. LENVATINIB [Suspect]
     Active Substance: LENVATINIB
     Dosage: 10 MG, UNK
     Route: 048

REACTIONS (6)
  - Myalgia [Recovered/Resolved]
  - Concomitant disease aggravated [Recovered/Resolved]
  - Lymphoedema [Recovered/Resolved]
  - Nasal congestion [Not Recovered/Not Resolved]
  - Cough [Recovered/Resolved]
  - Epistaxis [Recovered/Resolved]
